FAERS Safety Report 15091037 (Version 1)
Quarter: 2018Q2

REPORT INFORMATION
  Report Type: Spontaneous
  Country: US (occurrence: US)
  Receive Date: 20180629
  Receipt Date: 20180629
  Transmission Date: 20180711
  Serious: No
  Sender: FDA-Public Use
  Company Number: US-AMGEN-USASP2011014449

PATIENT
  Age: 58 Year
  Sex: Female

DRUGS (24)
  1. NOVOLOG [Concomitant]
     Active Substance: INSULIN ASPART
  2. HYDRALAZINE [Concomitant]
     Active Substance: HYDRALAZINE HYDROCHLORIDE
  3. PROLIA [Suspect]
     Active Substance: DENOSUMAB
     Indication: OSTEOPOROSIS POSTMENOPAUSAL
     Dosage: 60 MG, Q6MO
     Dates: start: 20110314
  4. ASPIRIN. [Concomitant]
     Active Substance: ASPIRIN
     Dosage: 1 MG, QD
  5. IRON [Concomitant]
     Active Substance: IRON
     Dosage: 2 MG, QD
  6. MOTRIN [Concomitant]
     Active Substance: IBUPROFEN
  7. APAP [Concomitant]
     Active Substance: ACETAMINOPHEN
  8. METFORMIN [Concomitant]
     Active Substance: METFORMIN HYDROCHLORIDE
  9. VITAMIN D                          /00107901/ [Concomitant]
     Active Substance: ERGOCALCIFEROL
  10. CALTRATE WITH VITAMIN D [Concomitant]
     Active Substance: CALCIUM CARBONATE\CHOLECALCIFEROL
  11. LIPITOR [Concomitant]
     Active Substance: ATORVASTATIN CALCIUM
     Dosage: 1 MG, QD
  12. SINGULAIR [Concomitant]
     Active Substance: MONTELUKAST SODIUM
     Dosage: 1 MG, QD
  13. METOLAZONE. [Concomitant]
     Active Substance: METOLAZONE
     Dosage: 1 MG, Q2WK
  14. VICTOZA [Concomitant]
     Active Substance: LIRAGLUTIDE
     Dosage: UNK UNK, QD
  15. PROZAC [Concomitant]
     Active Substance: FLUOXETINE HYDROCHLORIDE
  16. ISOSORBIDE MONONITRATE. [Concomitant]
     Active Substance: ISOSORBIDE MONONITRATE
  17. BIOTIN [Concomitant]
     Active Substance: BIOTIN
  18. FISH OIL [Concomitant]
     Active Substance: FISH OIL
  19. AVAPRO [Concomitant]
     Active Substance: IRBESARTAN
     Dosage: 1 MG, QD
  20. LANTUS [Concomitant]
     Active Substance: INSULIN GLARGINE
  21. LASIX [Concomitant]
     Active Substance: FUROSEMIDE
  22. POTASSIUM [Concomitant]
     Active Substance: POTASSIUM
     Dosage: UNK
  23. TRAMADOL. [Concomitant]
     Active Substance: TRAMADOL
     Dosage: 1 MG, Q6H
  24. CINNAMON. [Concomitant]
     Active Substance: CINNAMON

REACTIONS (1)
  - Pain in extremity [Unknown]

NARRATIVE: CASE EVENT DATE: 20110315
